FAERS Safety Report 18539797 (Version 1)
Quarter: 2020Q4

REPORT INFORMATION
  Report Type: Spontaneous
  Country: US (occurrence: US)
  Receive Date: 20201005
  Receipt Date: 20201005
  Transmission Date: 20210114
  Serious: No
  Sender: FDA-Public Use
  Company Number: None

PATIENT
  Age: 7 Decade
  Sex: Female

DRUGS (5)
  1. UMIFENOVIR. [Suspect]
     Active Substance: UMIFENOVIR
     Indication: COVID-19
     Route: 048
     Dates: start: 2020
  2. GAMMA IMMUNOGLOBULIN [Suspect]
     Active Substance: HUMAN IMMUNOGLOBULIN G
     Indication: COVID-19
     Route: 042
     Dates: start: 2020
  3. SHUFENG JIEDU [Suspect]
     Active Substance: HERBALS
     Indication: COVID-19
     Route: 048
     Dates: start: 2020
  4. LOPINAVIR-RITONAVIR [Suspect]
     Active Substance: LOPINAVIR\RITONAVIR
     Indication: COVID-19
     Dosage: ?          OTHER DOSE:400/100 MG;?
     Route: 048
     Dates: start: 2020
  5. SERUM ALBUMIN, HUMAN [Suspect]
     Active Substance: ALBUMIN HUMAN
     Indication: COVID-19
     Route: 042
     Dates: start: 2020

REACTIONS (1)
  - Off label use [None]
